FAERS Safety Report 17266675 (Version 1)
Quarter: 2020Q1

REPORT INFORMATION
  Report Type: Spontaneous
  Country: US (occurrence: US)
  Receive Date: 20200113
  Receipt Date: 20200113
  Transmission Date: 20200409
  Serious: Yes (Other)
  Sender: FDA-Public Use
  Company Number: None

PATIENT
  Age: 73 Year
  Sex: Female

DRUGS (18)
  1. SENOKOT 8.6 MG 1 TO 4 TABS QD [Concomitant]
     Dates: start: 20191120
  2. ALBUTEROL NEB Q2H PRN WHEEZING [Concomitant]
     Dates: start: 20191004
  3. MORPHINE EXTENDED RELEASE TABLETS [Suspect]
     Active Substance: MORPHINE
     Indication: PAIN
     Route: 048
     Dates: start: 20191114
  4. RISPERIDONE 1 MG PO QHS [Concomitant]
     Dates: start: 20191112
  5. BISACODYL 10 MG SUPPOSITORY QD PRN CONSTIPATION [Concomitant]
     Dates: start: 20191120
  6. HYDROXYCHLOROQUINE 200 MG PO BID [Concomitant]
     Dates: start: 20191004
  7. MORPHINE ER 15 MG 1 TAB PO QD [Concomitant]
     Dates: start: 20191114
  8. TRAZODONE 50 MG PO QHS [Concomitant]
     Dates: start: 20191202
  9. MORPHINE EXTENDED-RELEASE TABLETS [Suspect]
     Active Substance: MORPHINE SULFATE
  10. VENLAFAXINE 75 MG PO QD [Concomitant]
     Dates: start: 20191004
  11. LEVOTHYROXINE 100 MCG QD [Concomitant]
     Dates: start: 20191112
  12. MORPHINE 20 MG/ML 0.1 TO 0.5 ML PO Q1H PRN FOR PAIN OR DYSPNEA [Concomitant]
     Dates: start: 20191120
  13. TORSEMDIE 40 MG PO QD [Concomitant]
     Dates: start: 20191004
  14. GABAPENTIN 600 MG QHS [Concomitant]
     Dates: start: 20191112
  15. DIAZEPAM 2.5 MG PO BID [Concomitant]
     Dates: start: 20191210
  16. OMEPRAZEOLE 20 QD [Concomitant]
     Dates: start: 20191112
  17. ATIVAN 0.5 MG 1 TO 2 TABS Q4H PRN [Concomitant]
     Dates: start: 20191120
  18. LOMOTIL 1 TAB FOUR TIMES DAILY PRN [Concomitant]
     Dates: start: 20191210

REACTIONS (3)
  - Incorrect dose administered [None]
  - Product dispensing error [None]
  - Sedation [None]
